FAERS Safety Report 8288904-3 (Version None)
Quarter: 2012Q2

REPORT INFORMATION
  Report Type: 
  Country: None (occurrence: None)
  Receive Date: 20120412
  Receipt Date: 20120405
  Transmission Date: 20120825
  Serious: Yes (Hospitalization)
  Sender: FDA-Public Use
  Company Number: FR-DEXPHARM-20120174

PATIENT
  Age: 20 Year
  Sex: Male

DRUGS (5)
  1. TEICOPLANIN [Concomitant]
  2. ESOMEPRAZOLE MAGNESIUM [Suspect]
     Dosage: 40 MG MILLGRAM(S)  SEP. DOSAGES / INTERVAL: 1 IN 1 DAY
  3. MEROPENEM [Concomitant]
  4. OMEPRAZOLE [Suspect]
     Dates: start: 20060101, end: 20100730
  5. TOBRAMYCIN [Concomitant]

REACTIONS (1)
  - AGRANULOCYTOSIS [None]
